FAERS Safety Report 7257289-3 (Version None)
Quarter: 2011Q1

REPORT INFORMATION
  Report Type: 
  Country: None (occurrence: None)
  Receive Date: 20110129
  Receipt Date: 20100712
  Transmission Date: 20110831
  Serious: No
  Sender: FDA-Public Use
  Company Number: US-ABBOTT-10P-163-0656401-00

PATIENT
  Age: 72 Year
  Sex: Female

DRUGS (6)
  1. TRAMADOL HCL [Concomitant]
     Indication: PAIN
  2. FISH OIL [Concomitant]
     Indication: PRODUCT USED FOR UNKNOWN INDICATION
  3. HUMIRA [Suspect]
     Indication: RHEUMATOID ARTHRITIS
     Dates: start: 20050701, end: 20100613
  4. UNKNOWN MEDICATION [Concomitant]
     Indication: CARDIAC DISORDER
  5. CEPHALEXIN [Concomitant]
     Indication: PRODUCT USED FOR UNKNOWN INDICATION
  6. MULTIVITAMIN [Concomitant]
     Indication: PRODUCT USED FOR UNKNOWN INDICATION

REACTIONS (1)
  - CELLULITIS [None]
